FAERS Safety Report 7417440-9 (Version None)
Quarter: 2011Q2

REPORT INFORMATION
  Report Type: 
  Country: None (occurrence: None)
  Receive Date: 20110412
  Receipt Date: 20110412
  Transmission Date: 20111010
  Serious: No
  Sender: FDA-Public Use
  Company Number: None

PATIENT
  Age: 31 Year
  Sex: Female
  Weight: 69.4003 kg

DRUGS (1)
  1. GIANVI 3MG /0.02 MG [Suspect]
     Indication: CONTRACEPTION
     Dosage: 1 TAB DAILY PO
     Route: 048
     Dates: start: 20110306, end: 20110403

REACTIONS (1)
  - MUSCLE SPASMS [None]
